FAERS Safety Report 6148884-3 (Version None)
Quarter: 2009Q2

REPORT INFORMATION
  Report Type: 
  Country: None (occurrence: None)
  Receive Date: 20090407
  Receipt Date: 20090326
  Transmission Date: 20091009
  Serious: Yes (Other)
  Sender: FDA-Public Use
  Company Number: 2009US000927

PATIENT
  Age: 62 Year
  Sex: Female

DRUGS (8)
  1. PROGRAF [Suspect]
     Indication: LIVER TRANSPLANT
     Dosage: 7 MG, UID/QD
  2. INSULIN (INSULIN) [Concomitant]
  3. ATENOLOL [Concomitant]
  4. CRESTOR [Concomitant]
  5. ASPIRIN [Concomitant]
  6. PLAVIX [Concomitant]
  7. LISINOPRIL [Concomitant]
  8. COUMADIN [Concomitant]

REACTIONS (3)
  - CORONARY ARTERY OCCLUSION [None]
  - DIARRHOEA [None]
  - TREMOR [None]
